FAERS Safety Report 6862350-9 (Version None)
Quarter: 2010Q3

REPORT INFORMATION
  Report Type: 
  Country: None (occurrence: None)
  Receive Date: 20100719
  Receipt Date: 20100701
  Transmission Date: 20110219
  Serious: Yes (Other)
  Sender: FDA-Public Use
  Company Number: 2010AP001365

PATIENT
  Age: 14 Year
  Sex: Female

DRUGS (3)
  1. MYCOPHENOLATE MOFETIL [Suspect]
     Indication: AUTOIMMUNE HEPATITIS
  2. RITUXIMAB (RITUXIMAB) [Suspect]
     Indication: THROMBOTIC THROMBOCYTOPENIC PURPURA
     Dosage: 375 MG/M2; QW
  3. PREDNISOLONE [Suspect]
     Indication: AUTOIMMUNE HEPATITIS

REACTIONS (6)
  - AUTOANTIBODY POSITIVE [None]
  - HAEMOGLOBIN DECREASED [None]
  - SERUM SICKNESS [None]
  - THROMBOCYTOPENIC PURPURA [None]
  - TROPONIN INCREASED [None]
  - VISION BLURRED [None]
